FAERS Safety Report 14349660 (Version 1)
Quarter: 2018Q1

REPORT INFORMATION
  Report Type: Report from Study
  Country: US (occurrence: US)
  Receive Date: 20180104
  Receipt Date: 20180104
  Transmission Date: 20180509
  Serious: Yes (Hospitalization, Other)
  Sender: FDA-Public Use
  Company Number: US-BAYER-2017-140195

PATIENT
  Age: 63 Year
  Sex: Male
  Weight: 172.34 kg

DRUGS (4)
  1. ADEMPAS [Suspect]
     Active Substance: RIOCIGUAT
     Indication: PULMONARY HYPERTENSION
     Dosage: 2.5 MG, TID
     Route: 048
  2. ADEMPAS [Suspect]
     Active Substance: RIOCIGUAT
     Indication: PULMONARY HYPERTENSION
     Dosage: 1.5 MG, TID
     Route: 048
  3. COUMADIN [Concomitant]
     Active Substance: WARFARIN SODIUM
  4. ADEMPAS [Suspect]
     Active Substance: RIOCIGUAT
     Indication: PULMONARY HYPERTENSION
     Dosage: UNK
     Dates: start: 20170421

REACTIONS (7)
  - Hospitalisation [Unknown]
  - Pulmonary arterial hypertension [Recovering/Resolving]
  - Cellulitis [Unknown]
  - Oedema [None]
  - Gait disturbance [Unknown]
  - Knee arthroplasty [None]
  - Renal disorder [None]
